FAERS Safety Report 6342766-X (Version None)
Quarter: 2009Q3

REPORT INFORMATION
  Report Type: 
  Country: None (occurrence: None)
  Receive Date: 20090908
  Receipt Date: 20090828
  Transmission Date: 20100115
  Serious: Yes (Disabling)
  Sender: FDA-Public Use
  Company Number: FR-JNJFOC-20090402688

PATIENT
  Sex: Male

DRUGS (6)
  1. PREZISTA [Suspect]
     Route: 048
  2. PREZISTA [Suspect]
     Indication: HIV INFECTION
     Dosage: 2 TABLETS OF 300MG, TWICE DAILY
     Route: 048
  3. NORVIR [Suspect]
     Route: 048
  4. NORVIR [Suspect]
     Indication: HIV INFECTION
     Route: 048
  5. VIRAMUNE [Suspect]
     Indication: HIV INFECTION
     Route: 048
  6. ZELITREX [Suspect]
     Indication: DRUG USE FOR UNKNOWN INDICATION
     Route: 048

REACTIONS (1)
  - MACULOPATHY [None]
